FAERS Safety Report 4659252-5 (Version None)
Quarter: 2005Q2

REPORT INFORMATION
  Report Type: 
  Country: None (occurrence: None)
  Receive Date: 20050502
  Receipt Date: 20050224
  Transmission Date: 20051028
  Serious: No
  Sender: FDA-Public Use
  Company Number: 200511706US

PATIENT
  Age: 67 Year
  Sex: Female

DRUGS (8)
  1. KETEK [Suspect]
     Indication: FOLLICULITIS
     Dosage: 400 MG QD
     Dates: start: 20050118
  2. KETEK [Suspect]
     Indication: ULCER
     Dosage: 400 MG QD
     Dates: start: 20050118
  3. INSULIN [Concomitant]
  4. DIABETES PILLS [Concomitant]
  5. WATER PILL [Concomitant]
  6. WARFARIN SODIUM [Concomitant]
  7. ERYTHROPOIETIN (PROCRIT) [Concomitant]
  8. VITAMINS [Concomitant]

REACTIONS (2)
  - DRUG INEFFECTIVE [None]
  - FLUID RETENTION [None]
